FAERS Safety Report 6867085-4 (Version None)
Quarter: 2010Q3

REPORT INFORMATION
  Report Type: 
  Country: None (occurrence: None)
  Receive Date: 20100722
  Receipt Date: 20100716
  Transmission Date: 20110219
  Serious: Yes (Hospitalization)
  Sender: FDA-Public Use
  Company Number: A0829278A

PATIENT
  Age: 50 Year
  Sex: Female

DRUGS (1)
  1. ROSIGLITAZONE MALEATE [Suspect]
     Indication: DIABETES MELLITUS
     Route: 048
     Dates: start: 20080101

REACTIONS (5)
  - CARDIOVASCULAR DISORDER [None]
  - CONVULSION [None]
  - INJURY [None]
  - OSTEOMYELITIS [None]
  - SPINAL DISORDER [None]
